FAERS Safety Report 20141614 (Version 1)
Quarter: 2021Q4

REPORT INFORMATION
  Report Type: Spontaneous
  Country: US (occurrence: None)
  Receive Date: 20211202
  Receipt Date: 20211202
  Transmission Date: 20220304
  Serious: No
  Sender: FDA-Public Use
  Company Number: None

PATIENT
  Age: 85 Year
  Sex: Female
  Weight: 54.45 kg

DRUGS (4)
  1. PIQRAY [Suspect]
     Active Substance: ALPELISIB
     Indication: Breast cancer
     Dosage: FREQUENCY : DAILY;?
     Route: 048
     Dates: start: 20211108
  2. LETROZOLE [Concomitant]
  3. XGEVA [Concomitant]
  4. Calcium Gummies [Concomitant]

REACTIONS (2)
  - Gastric disorder [None]
  - Mouth swelling [None]

NARRATIVE: CASE EVENT DATE: 20211202
